FAERS Safety Report 10256519 (Version 1)
Quarter: 2014Q2

REPORT INFORMATION
  Report Type: Spontaneous
  Country: US (occurrence: US)
  Receive Date: 20140624
  Receipt Date: 20140624
  Transmission Date: 20141212
  Serious: No
  Sender: FDA-Public Use
  Company Number: US-ZOGENIX, INC.-2012ZX000225

PATIENT
  Age: 42 Year
  Sex: Male
  Weight: 79 kg

DRUGS (12)
  1. SUMAVEL DOSEPRO [Suspect]
     Indication: MIGRAINE
     Dates: start: 20120615, end: 20120615
  2. PROGRAF [Concomitant]
     Route: 048
  3. FOSAMAX [Concomitant]
     Route: 048
  4. PROTONIX [Concomitant]
     Route: 048
  5. ASA [Concomitant]
     Route: 048
  6. EFFEXOR [Concomitant]
     Route: 048
  7. METOPROLOL [Concomitant]
     Indication: BLOOD PRESSURE
     Route: 048
  8. TOPAMAX [Concomitant]
     Indication: MIGRAINE
     Route: 048
  9. CRESTOR [Concomitant]
     Indication: BLOOD CHOLESTEROL
     Route: 048
  10. LOVAZA [Concomitant]
     Indication: BLOOD CHOLESTEROL
     Route: 048
  11. CITRACAL D [Concomitant]
     Indication: VITAMIN SUPPLEMENTATION
     Route: 048
  12. TYLENOL XS [Concomitant]
     Indication: PAIN
     Route: 048

REACTIONS (1)
  - Drug ineffective [Not Recovered/Not Resolved]
